FAERS Safety Report 5148995-5 (Version None)
Quarter: 2006Q4

REPORT INFORMATION
  Report Type: 
  Country: None (occurrence: None)
  Receive Date: 20061113
  Receipt Date: 20061108
  Transmission Date: 20070319
  Serious: Yes (Life-Threatening)
  Sender: FDA-Public Use
  Company Number: 2006CG01821

PATIENT
  Age: 17 Year
  Sex: Female

DRUGS (3)
  1. DIPRIVAN [Suspect]
     Route: 042
     Dates: start: 20061024
  2. DIPRIVAN [Suspect]
     Route: 042
  3. DIPRIVAN [Suspect]
     Route: 042
     Dates: end: 20061027

REACTIONS (5)
  - CARDIOMYOPATHY [None]
  - METABOLIC ACIDOSIS [None]
  - RENAL FAILURE ACUTE [None]
  - RHABDOMYOLYSIS [None]
  - SHOCK [None]
